FAERS Safety Report 5704203-5 (Version None)
Quarter: 2008Q2

REPORT INFORMATION
  Report Type: 
  Country: None (occurrence: None)
  Receive Date: 20080409
  Receipt Date: 20080404
  Transmission Date: 20081010
  Serious: Yes (Hospitalization)
  Sender: FDA-Public Use
  Company Number: TCI2008A01569

PATIENT
  Age: 69 Year
  Sex: Male

DRUGS (5)
  1. LEUPROLIDE ACETATE [Suspect]
     Indication: PROSTATE CANCER
     Dosage: 3.75 MG (3.75 MG, 1 IN28 D) SUBCUTANEOUS
     Route: 058
     Dates: start: 20080209, end: 20080209
  2. GESIN-L (CHLORMADINONE ACETATE) (TABLETS) [Suspect]
     Indication: PROSTATE CANCER
     Dosage: 200 MG (100 MG, 2 IN 1 D) PER ORAL
     Route: 048
     Dates: start: 20080131, end: 20080304
  3. GLYBURIDE [Concomitant]
  4. ALOSENN (ALOSENN) (GRANULATE) [Concomitant]
  5. BENZALIN (NITRAZEPAM) (TABLETS) [Concomitant]

REACTIONS (1)
  - CHOLESTASIS [None]
